FAERS Safety Report 9325608 (Version 2)
Quarter: 2013Q3

REPORT INFORMATION
  Report Type: Spontaneous
  Country: US (occurrence: US)
  Receive Date: 20130604
  Receipt Date: 20130702
  Transmission Date: 20140515
  Serious: No
  Sender: FDA-Public Use
  Company Number: US-009507513-1306USA000934

PATIENT
  Age: 20 Year
  Sex: Female
  Weight: 60.77 kg

DRUGS (2)
  1. NEXPLANON [Suspect]
     Dosage: UNK
     Route: 059
     Dates: start: 20130516
  2. ANTIMICROBIAL (UNSPECIFIED) [Concomitant]
     Dosage: UNK
     Dates: start: 20130516

REACTIONS (2)
  - Implant site infection [Unknown]
  - Product contamination [Unknown]
